FAERS Safety Report 5485764-0 (Version None)
Quarter: 2007Q4

REPORT INFORMATION
  Report Type: 
  Country: None (occurrence: None)
  Receive Date: 20071015
  Receipt Date: 20071008
  Transmission Date: 20080405
  Serious: Yes (Other)
  Sender: FDA-Public Use
  Company Number: B0491000A

PATIENT
  Sex: Male

DRUGS (1)
  1. NIQUITIN CQ 2MG LOZENGE [Suspect]
     Indication: SMOKING CESSATION THERAPY
     Dosage: 3LOZ PER DAY
     Route: 065

REACTIONS (1)
  - DRUG DEPENDENCE [None]
